FAERS Safety Report 4403794-4 (Version None)
Quarter: 2004Q2

REPORT INFORMATION
  Report Type: 
  Country: None (occurrence: None)
  Receive Date: 20040618
  Receipt Date: 20040301
  Transmission Date: 20050107
  Serious: No
  Sender: FDA-Public Use
  Company Number: US-JNJFOC-20040300874

PATIENT
  Age: 35 Year
  Sex: Female
  Weight: 63.5036 kg

DRUGS (2)
  1. ORTHO EVRA [Suspect]
     Indication: CONTRACEPTION
     Dosage: 1 DOSE(S) 3 IN 4 WEEK TRANSDERMAL
     Route: 062
     Dates: start: 20021101, end: 20030303
  2. ZOLOFT [Concomitant]

REACTIONS (3)
  - BLOOD FOLLICLE STIMULATING HORMONE ABNORMAL [None]
  - BLOOD PROLACTIN ABNORMAL [None]
  - INSOMNIA [None]
